FAERS Safety Report 7966534-8 (Version None)
Quarter: 2011Q4

REPORT INFORMATION
  Report Type: 
  Country: None (occurrence: None)
  Receive Date: 20111208
  Receipt Date: 20111118
  Transmission Date: 20120403
  Serious: Yes (Other)
  Sender: FDA-Public Use
  Company Number: US-ROCHE-1008556

PATIENT
  Age: 36 Year
  Sex: Female

DRUGS (2)
  1. PACLITAXEL [Suspect]
     Indication: BREAST CANCER
     Dosage: LAST DOSE: 21 JUNE 2011
     Route: 042
     Dates: start: 20110608
  2. AVASTIN [Suspect]
     Indication: BREAST CANCER
     Dosage: LAST DOSE: 21 JUNE 2011
     Route: 042
     Dates: start: 20110608

REACTIONS (3)
  - HEADACHE [None]
  - HAEMORRHAGE INTRACRANIAL [None]
  - CEREBRAL VASOCONSTRICTION [None]
